FAERS Safety Report 20493779 (Version 1)
Quarter: 2022Q1

REPORT INFORMATION
  Report Type: Spontaneous
  Country: US (occurrence: US)
  Receive Date: 20220221
  Receipt Date: 20220221
  Transmission Date: 20220423
  Serious: No
  Sender: FDA-Public Use
  Company Number: US-TEVA-2022-US-2003069

PATIENT
  Age: 49 Year
  Sex: Female
  Weight: 66.22 kg

DRUGS (1)
  1. LIOTHYRONINE [Suspect]
     Active Substance: LIOTHYRONINE
     Indication: Hypothyroidism
     Dosage: 10 MICROGRAM DAILY;
     Route: 065

REACTIONS (2)
  - Drug ineffective [Unknown]
  - Adverse event [Unknown]
